FAERS Safety Report 8799072 (Version 1)
Quarter: 2012Q4

REPORT INFORMATION
  Report Type: 
  Country: US (occurrence: US)
  Receive Date: 20120920
  Receipt Date: 20120920
  Transmission Date: 20130627
  Serious: No
  Sender: FDA-Public Use
  Company Number: US-ASTRAZENECA-2011SE59514

PATIENT
  Weight: 90.5 kg

DRUGS (12)
  1. LISINOPRIL [Suspect]
     Route: 048
  2. FLUOXETINE HCL [Concomitant]
     Indication: DEPRESSION
  3. FUROSEMIDE [Concomitant]
  4. GABAPENTIN [Concomitant]
  5. LORATADINE [Concomitant]
     Indication: HYPERSENSITIVITY
  6. LOSARTAN POTASSIUM [Concomitant]
  7. MOMETASONE FUROATE [Concomitant]
     Indication: ASTHMA
  8. RANITIDINE HCL [Concomitant]
     Indication: GASTRIC DISORDER
  9. SILVER SULFADIAZINE [Concomitant]
     Indication: INFECTION
  10. SIMVASTATIN [Concomitant]
     Indication: BLOOD CHOLESTEROL
  11. CLOPIDOGREL BISULFATE [Concomitant]
     Indication: ANTICOAGULANT THERAPY
  12. OMEPRAZOLE [Concomitant]
     Indication: GASTRIC DISORDER

REACTIONS (1)
  - Adverse drug reaction [Unknown]
